FAERS Safety Report 19269043 (Version 1)
Quarter: 2021Q2

REPORT INFORMATION
  Report Type: Spontaneous
  Country: NL (occurrence: NL)
  Receive Date: 20210517
  Receipt Date: 20210517
  Transmission Date: 20210717
  Serious: Yes (Hospitalization)
  Sender: FDA-Public Use
  Company Number: NL-PFIZER INC-2021496940

PATIENT
  Age: 59 Year
  Sex: Female
  Weight: 88 kg

DRUGS (10)
  1. HYDROCORTISONE. [Suspect]
     Active Substance: HYDROCORTISONE
     Indication: BLINDNESS
     Dosage: 20 MG, DAILY. DAY 2, 8 HOURS, 4 PIECES 5 MILLIGRAMS
     Dates: start: 20210417
  2. HYDROCORTISONE. [Suspect]
     Active Substance: HYDROCORTISONE
     Dosage: 20 MG, DAILY. DAY 3, 8 HOURS, 4 PIECES 5 MILLIGRAMS, WITHOUT PREJUDICE TO REACTION.
     Dates: start: 20210418
  3. HYDROCORTISONE. [Suspect]
     Active Substance: HYDROCORTISONE
     Dosage: 20 MG, DAILY. DAY 4, 7 HOURS, 4 PIECES OF 5 MILLIGRAMS IN THE BEGINNING OF A VIOLENT REACTION
     Dates: start: 20210419
  4. HYDROCORTISONE. [Suspect]
     Active Substance: HYDROCORTISONE
     Dosage: 20 MG, DAILY. DAY 5 8.15 AM, 4 PIECES 5 MILLIGRAMS
     Dates: start: 20210420
  5. MORFINE [Concomitant]
     Active Substance: MORPHINE
     Dosage: UNK
     Dates: start: 202104
  6. HYDROCORTISONE SODIUM SUCCINATE [Suspect]
     Active Substance: HYDROCORTISONE SODIUM SUCCINATE
     Indication: PITUITARY GLAND OPERATION
     Dosage: 50 MG( 1ST DAY, 15 HOURS, 50 MILLIGRAMS IN THE INFUSION, VERY VIOLENT REACTION)
     Dates: start: 20210416
  7. OXAZEPAM. [Concomitant]
     Active Substance: OXAZEPAM
     Dosage: 10 MG
  8. HYDROCORTISONE SODIUM SUCCINATE [Suspect]
     Active Substance: HYDROCORTISONE SODIUM SUCCINATE
     Indication: BLINDNESS
  9. HYDROCORTISONE. [Suspect]
     Active Substance: HYDROCORTISONE
     Indication: PITUITARY GLAND OPERATION
     Dosage: 30 MG (1ST DAY, 19 HOURS IN TABLET 4 PIECES OF 5 MILLIGRAMS, 23 HOURS, 2 PIECES OF 5 MILLIGRAMS)
     Dates: start: 20210416
  10. PARACETAMOL [Concomitant]
     Active Substance: ACETAMINOPHEN
     Dosage: UNK
     Dates: start: 202104

REACTIONS (15)
  - Pulmonary pain [Recovering/Resolving]
  - Lip dry [Recovering/Resolving]
  - Fear of death [Recovering/Resolving]
  - Dry mouth [Recovering/Resolving]
  - Withdrawal syndrome [Unknown]
  - Off label use [Unknown]
  - Tongue dry [Recovering/Resolving]
  - Aptyalism [Recovering/Resolving]
  - Nightmare [Unknown]
  - Feeling hot [Unknown]
  - Insomnia [Unknown]
  - Dyspnoea [Recovering/Resolving]
  - Feeling cold [Unknown]
  - Dry throat [Recovering/Resolving]
  - Tremor [Unknown]

NARRATIVE: CASE EVENT DATE: 202104
